FAERS Safety Report 10050122 (Version 2)
Quarter: 2015Q2

REPORT INFORMATION
  Report Type: Spontaneous
  Country: DK (occurrence: DK)
  Receive Date: 20140401
  Receipt Date: 20150407
  Transmission Date: 20150821
  Serious: Yes (Hospitalization, Other)
  Sender: FDA-Public Use
  Company Number: DK-ELI_LILLY_AND_COMPANY-DK201403008928

PATIENT
  Age: 54 Year
  Sex: Male

DRUGS (7)
  1. CIPRALEX [Interacting]
     Active Substance: ESCITALOPRAM OXALATE
     Dosage: 120 MG, UNKNOWN
     Route: 048
     Dates: end: 20100322
  2. MODIODAL [Interacting]
     Active Substance: MODAFINIL
     Dosage: 400 MG, QD
     Route: 048
     Dates: start: 20100224, end: 20100322
  3. ALOPAM [Concomitant]
     Active Substance: OXAZEPAM
     Dosage: UNK UNK, PRN
     Route: 048
  4. CIPRALEX [Interacting]
     Active Substance: ESCITALOPRAM OXALATE
     Indication: DEPRESSION
     Dosage: 20 MG, UNKNOWN
     Route: 048
     Dates: start: 2009
  5. CYMBALTA [Suspect]
     Active Substance: DULOXETINE HYDROCHLORIDE
     Indication: ANXIETY
     Dosage: 120 MG, UNKNOWN
     Route: 048
     Dates: start: 20091021, end: 20100322
  6. MODIODAL [Interacting]
     Active Substance: MODAFINIL
     Indication: FATIGUE
     Dosage: 200 MG, QD
     Route: 048
     Dates: start: 20100209, end: 20100223
  7. CIPRALEX [Interacting]
     Active Substance: ESCITALOPRAM OXALATE
     Dosage: 30 MG, UNKNOWN
     Route: 048

REACTIONS (21)
  - Depressed level of consciousness [Recovered/Resolved]
  - Tremor [Recovered/Resolved]
  - Hepatic cirrhosis [Unknown]
  - Muscle twitching [Unknown]
  - Musculoskeletal stiffness [Recovered/Resolved]
  - Hepatic failure [Recovered/Resolved]
  - Coma hepatic [Unknown]
  - Serotonin syndrome [Recovered/Resolved]
  - Fatigue [Recovered/Resolved]
  - Drug interaction [Unknown]
  - Lethargy [Recovered/Resolved]
  - Muscle tightness [Recovered/Resolved]
  - Anxiety [Unknown]
  - Incoherent [Unknown]
  - Myalgia [Recovered/Resolved]
  - Hypokinesia [Unknown]
  - Motor dysfunction [Recovered/Resolved]
  - Hypoaesthesia [Recovered/Resolved]
  - Muscle contractions involuntary [Recovered/Resolved]
  - Muscle spasms [Recovered/Resolved]
  - Hepatic encephalopathy [Recovered/Resolved]

NARRATIVE: CASE EVENT DATE: 20091104
